FAERS Safety Report 16705528 (Version 1)
Quarter: 2019Q4

REPORT INFORMATION
  Report Type: Spontaneous
  Country: US (occurrence: US)
  Receive Date: 20190814
  Receipt Date: 20190814
  Transmission Date: 20200122
  Serious: No
  Sender: FDA-Public Use
  Company Number: None

PATIENT
  Age: 25 Year
  Sex: Female
  Weight: 69.3 kg

DRUGS (1)
  1. MEDROXYPROGESTERONE ACETATE INJECTION SUSPENSION USP [Suspect]
     Active Substance: MEDROXYPROGESTERONE ACETATE
     Indication: CONTRACEPTION
     Dosage: ?          OTHER FREQUENCY:EVERY 13 WEEKS;?

REACTIONS (3)
  - Injection site swelling [None]
  - Injection site urticaria [None]
  - Injection site erythema [None]

NARRATIVE: CASE EVENT DATE: 20190814
